FAERS Safety Report 5689880-X (Version None)
Quarter: 2008Q1

REPORT INFORMATION
  Report Type: 
  Country: None (occurrence: None)
  Receive Date: 20080331
  Receipt Date: 20080331
  Transmission Date: 20080703
  Serious: Yes (Hospitalization)
  Sender: FDA-Public Use
  Company Number: None

PATIENT
  Age: 38 Year
  Sex: Male

DRUGS (1)
  1. LISINOPRIL [Suspect]
     Indication: HYPERTENSION
     Dosage: 60MG EVERY DAY PO
     Route: 048
     Dates: start: 20050621, end: 20080108

REACTIONS (2)
  - ANGIOEDEMA [None]
  - LIP SWELLING [None]
